FAERS Safety Report 10522645 (Version 1)
Quarter: 2014Q4

REPORT INFORMATION
  Report Type: Spontaneous
  Country: US (occurrence: None)
  Receive Date: 20141010
  Receipt Date: 20141010
  Transmission Date: 20150528
  Serious: Yes (Hospitalization, Other)
  Sender: FDA-Public Use
  Company Number: B0826163A

PATIENT
  Age: 42 Year
  Sex: Male
  Weight: 82 kg

DRUGS (13)
  1. LAMIVUDINE (LAMIVUDINE) UNKNOWN [Suspect]
     Active Substance: LAMIVUDINE
     Indication: HIV INFECTION
     Route: 048
     Dates: start: 20120613, end: 20120616
  2. ACYCLOVIR (ACYCLOVIR) [Concomitant]
     Active Substance: ACYCLOVIR
  3. PROMETHAZINE [Concomitant]
     Active Substance: PROMETHAZINE\PROMETHAZINE HYDROCHLORIDE
  4. AMBIEN [Concomitant]
     Active Substance: ZOLPIDEM TARTRATE
  5. ISENTRESS [Concomitant]
     Active Substance: RALTEGRAVIR POTASSIUM
  6. TRUVADA (EMTRICITABINE + TENOFOVIR DISOPROXIL FUMARATE) TABLET [Concomitant]
  7. NORVIR [Concomitant]
     Active Substance: RITONAVIR
  8. INTELENCE (ETRAVIRINE) [Concomitant]
  9. DARUNAVIR (DARUNAVIR) [Concomitant]
  10. ATIVAN [Concomitant]
     Active Substance: LORAZEPAM
  11. ZOLPIDEM (ZOLPIDEM) [Concomitant]
     Active Substance: ZOLPIDEM TARTRATE
  12. BENADRYL (BENADRYL (NOS)) [Concomitant]
  13. COMBIVENT (IPRATROPIUM BROMIDE + SALBUTAMOL SULFATE) [Concomitant]

REACTIONS (3)
  - Condition aggravated [None]
  - Genital herpes [None]
  - Acute psychosis [None]

NARRATIVE: CASE EVENT DATE: 20120603
